FAERS Safety Report 23393501 (Version 6)
Quarter: 2025Q2

REPORT INFORMATION
  Report Type: Spontaneous
  Country: US (occurrence: US)
  Receive Date: 20240111
  Receipt Date: 20250422
  Transmission Date: 20250717
  Serious: Yes (Other)
  Sender: PFIZER
  Company Number: US-PFIZER INC-PV202400004057

PATIENT
  Age: 69 Year
  Sex: Female
  Weight: 67.574 kg

DRUGS (21)
  1. XELJANZ XR [Suspect]
     Active Substance: TOFACITINIB CITRATE
     Indication: Arthritis
     Dosage: 11MG X1DAILY. AM
  2. XELJANZ XR [Suspect]
     Active Substance: TOFACITINIB CITRATE
     Indication: Rheumatoid arthritis
     Dosage: 11 MG, 1X/DAY
  3. XELJANZ XR [Suspect]
     Active Substance: TOFACITINIB CITRATE
     Indication: Systemic lupus erythematosus
     Dosage: 11 MG ORAL DAILY
     Route: 048
  4. CEPHALEXIN [Concomitant]
     Active Substance: CEPHALEXIN
     Indication: Osteomyelitis
     Dosage: 500MG X 2DAILY AM,PM
  5. HYDROXYCHLOROQUINE [Concomitant]
     Active Substance: HYDROXYCHLOROQUINE
     Indication: Ehlers-Danlos syndrome
     Dosage: 200MG X 2DAILY AM,PM
  6. HYDROXYCHLOROQUINE [Concomitant]
     Active Substance: HYDROXYCHLOROQUINE
     Dosage: 300 MG, 2X/DAY
  7. TIZANIDINE [Concomitant]
     Active Substance: TIZANIDINE
     Dosage: 4MG X 3DAIIY AM,M,PM
  8. TIZANIDINE [Concomitant]
     Active Substance: TIZANIDINE
     Dosage: 1200 MG, 3X/DAY
  9. GABAPENTIN [Concomitant]
     Active Substance: GABAPENTIN
     Dosage: 800MG X 3DAILY AM,M,PM
  10. PRAMIPEXOLE [Concomitant]
     Active Substance: PRAMIPEXOLE
     Dosage: .5MG X 1DAILY PM
  11. PRAVASTATIN [Concomitant]
     Active Substance: PRAVASTATIN
     Dosage: 20MG X 1DAILY PM
  12. DULOXETINE [Concomitant]
     Active Substance: DULOXETINE
     Dosage: 60MG X 1DAILY PM
  13. PANTOPRAZOLE [Concomitant]
     Active Substance: PANTOPRAZOLE
     Dosage: 40MG X 1DAILY PM
  14. OXYCODONE [Concomitant]
     Active Substance: OXYCODONE
     Dosage: 10MG X 3DAILY AM,M,PM
     Route: 048
  15. XTAMPZA ER [Concomitant]
     Active Substance: OXYCODONE
     Dosage: 36MG X2DAIIY. AM,PM
  16. LEVOTHYROXINE [Concomitant]
     Active Substance: LEVOTHYROXINE
     Dosage: 25MCG X1DAILY. AM
  17. PROBIOTICS NOS [Concomitant]
     Active Substance: PROBIOTICS NOS
     Dosage: 2 DIFFERENT ONES X2 DAILY
  18. VITAMIN B12 [Concomitant]
     Active Substance: CYANOCOBALAMIN
     Dosage: X1 DAILY
  19. CALCIUM\CHOLECALCIFEROL [Concomitant]
     Active Substance: CALCIUM\CHOLECALCIFEROL
     Dosage: X1 DAILY
  20. FISH OIL [Concomitant]
     Active Substance: FISH OIL
     Dosage: 1200MG X1 DAILY
  21. FENTANYL [Concomitant]
     Active Substance: FENTANYL
     Dosage: 50 UG, ALTERNATE DAY

REACTIONS (10)
  - Eyelid ptosis [Recovered/Resolved]
  - Hip arthroplasty [Unknown]
  - Memory impairment [Not Recovered/Not Resolved]
  - Dyskinesia [Not Recovered/Not Resolved]
  - Tremor [Unknown]
  - Amnesia [Unknown]
  - Coordination abnormal [Unknown]
  - Arthritis infective [Unknown]
  - Post procedural infection [Unknown]
  - Liver function test increased [Unknown]

NARRATIVE: CASE EVENT DATE: 20231219
